FAERS Safety Report 13566790 (Version 3)
Quarter: 2018Q1

REPORT INFORMATION
  Report Type: Spontaneous
  Country: US (occurrence: US)
  Receive Date: 20170522
  Receipt Date: 20180316
  Transmission Date: 20180508
  Serious: Yes (Other)
  Sender: FDA-Public Use
  Company Number: US-AMGEN-USASP2017075732

PATIENT
  Age: 78 Year
  Sex: Female
  Weight: 58.96 kg

DRUGS (6)
  1. PROCRIT [Suspect]
     Active Substance: ERYTHROPOIETIN
     Dosage: UNK, QWK
     Route: 058
  2. IRON [Concomitant]
     Active Substance: IRON
     Indication: HAEMOGLOBIN DECREASED
     Dosage: UNK
  3. PROCRIT [Suspect]
     Active Substance: ERYTHROPOIETIN
     Dosage: 10 UNIT, UNK
     Route: 058
  4. PROCRIT [Suspect]
     Active Substance: ERYTHROPOIETIN
     Indication: HAEMOGLOBIN DECREASED
     Dosage: 10000 UNIT, AS NECESSARY (AS NEEDED UPON HEMOGLOBIN OF 10)
     Route: 058
     Dates: start: 2015
  5. PROCRIT [Suspect]
     Active Substance: ERYTHROPOIETIN
     Dosage: 20 UNIT, UNK
     Route: 058
     Dates: start: 20180306
  6. PROCRIT [Suspect]
     Active Substance: ERYTHROPOIETIN
     Dosage: 10 UNIT, UNK
     Route: 058
     Dates: start: 20180313

REACTIONS (2)
  - Pruritus [Not Recovered/Not Resolved]
  - Haemoglobin decreased [Not Recovered/Not Resolved]

NARRATIVE: CASE EVENT DATE: 2016
